FAERS Safety Report 9272308 (Version 4)
Quarter: 2013Q3

REPORT INFORMATION
  Report Type: Spontaneous
  Country: FR (occurrence: FR)
  Receive Date: 20130506
  Receipt Date: 20130920
  Transmission Date: 20140515
  Serious: Yes (Hospitalization, Other)
  Sender: FDA-Public Use
  Company Number: FR-GILEAD-2013-0074506

PATIENT
  Age: 26 Year
  Sex: Male

DRUGS (3)
  1. EVIPLERA [Suspect]
     Indication: HIV INFECTION
     Dosage: 1 DF, UNK
     Route: 048
     Dates: start: 20130213
  2. ATRIPLA [Concomitant]
     Indication: HIV INFECTION
     Dosage: UNK
     Dates: start: 20110901, end: 20130213
  3. OFLOCET                            /00731801/ [Concomitant]
     Indication: EAR INFECTION

REACTIONS (1)
  - Susac^s syndrome [Unknown]
